FAERS Safety Report 4522283-X (Version None)
Quarter: 2004Q4

REPORT INFORMATION
  Report Type: 
  Country: None (occurrence: None)
  Receive Date: 20041207
  Receipt Date: 20041124
  Transmission Date: 20050328
  Serious: Yes (Other)
  Sender: FDA-Public Use
  Company Number: 2004085695

PATIENT
  Sex: Female

DRUGS (1)
  1. ZELDOX (CAPSULES) (ZIPRASIDONE) [Suspect]
     Indication: ILL-DEFINED DISORDER
     Dosage: 60 MG, ORAL; SEE IMAGE
     Route: 048

REACTIONS (3)
  - CORNEAL OEDEMA [None]
  - OEDEMA PERIPHERAL [None]
  - VISUAL DISTURBANCE [None]
